FAERS Safety Report 8536606-8 (Version None)
Quarter: 2012Q3

REPORT INFORMATION
  Report Type: 
  Country: None (occurrence: None)
  Receive Date: 20120725
  Receipt Date: 20120719
  Transmission Date: 20120928
  Serious: No
  Sender: FDA-Public Use
  Company Number: US-PFIZER INC-001-0073-970030

PATIENT
  Age: 68 Year
  Sex: Male

DRUGS (7)
  1. DILANTIN KAPSEAL [Suspect]
     Dosage: 100 MG DAILY
     Route: 048
     Dates: start: 19961209
  2. NORVASC [Concomitant]
  3. QUININE SULFATE [Concomitant]
  4. TRANSDERM-NITRO [Concomitant]
     Dosage: UNK
  5. ORUVAIL [Concomitant]
     Dosage: UNK
  6. PROSCAR [Concomitant]
  7. HYTRIN [Concomitant]

REACTIONS (4)
  - ARTHRALGIA [None]
  - HYPERHIDROSIS [None]
  - HEADACHE [None]
  - CHEST PAIN [None]
